FAERS Safety Report 6389314-6 (Version None)
Quarter: 2009Q4

REPORT INFORMATION
  Report Type: 
  Country: None (occurrence: None)
  Receive Date: 20091006
  Receipt Date: 20091001
  Transmission Date: 20100525
  Serious: Yes (Death, Hospitalization, Other)
  Sender: FDA-Public Use
  Company Number: PHHY2009BR42284

PATIENT
  Sex: Male

DRUGS (2)
  1. EXFORGE [Suspect]
     Indication: HYPERTENSION
     Dosage: 1 TABLET OF EACH ACTIVE COMPOUND DAILY
     Route: 048
  2. ANCORON [Concomitant]
     Indication: HYPERTENSION
     Dosage: 1 TABLET (200 MG) FROM MONDAY TO FRIDAY
     Route: 048

REACTIONS (8)
  - ASTHENIA [None]
  - COMA [None]
  - DEATH [None]
  - DECREASED APPETITE [None]
  - DEHYDRATION [None]
  - GASTROINTESTINAL CARCINOMA [None]
  - POST PROCEDURAL COMPLICATION [None]
  - SURGERY [None]
